FAERS Safety Report 5245983-5 (Version None)
Quarter: 2007Q1

REPORT INFORMATION
  Report Type: 
  Country: None (occurrence: None)
  Receive Date: 20070220
  Receipt Date: 20070213
  Transmission Date: 20070707
  Serious: Yes (Hospitalization)
  Sender: FDA-Public Use
  Company Number: 106406ISR

PATIENT
  Age: 19 Year
  Sex: Male

DRUGS (2)
  1. GLATIRAMER ACETATE [Suspect]
     Indication: MULTIPLE SCLEROSIS
     Dosage: 20 MG (20 MG,ONCE A DAY) SUBCUTANEOUS
     Route: 058
     Dates: start: 20040504
  2. BETASERON [Suspect]
     Dosage: SEE IMAGE
     Route: 058

REACTIONS (5)
  - ANOREXIA [None]
  - ASTHENIA [None]
  - EPILEPSY [None]
  - HYPERTHERMIA [None]
  - PYREXIA [None]
